FAERS Safety Report 7045967-0 (Version None)
Quarter: 2010Q4

REPORT INFORMATION
  Report Type: 
  Country: None (occurrence: None)
  Receive Date: 20101013
  Receipt Date: 20101013
  Transmission Date: 20110411
  Serious: Yes (Disabling)
  Sender: FDA-Public Use
  Company Number: None

PATIENT
  Age: 81 Year
  Sex: Female
  Weight: 56.246 kg

DRUGS (1)
  1. MARCAINE [Suspect]
     Dates: start: 20100901, end: 20100921

REACTIONS (2)
  - ANAESTHETIC COMPLICATION [None]
  - DRUG INEFFECTIVE [None]
